FAERS Safety Report 7296434-0 (Version None)
Quarter: 2011Q1

REPORT INFORMATION
  Report Type: 
  Country: None (occurrence: None)
  Receive Date: 20110216
  Receipt Date: 20110208
  Transmission Date: 20110831
  Serious: Yes (Hospitalization, Other)
  Sender: FDA-Public Use
  Company Number: BR-BRISTOL-MYERS SQUIBB COMPANY-15545387

PATIENT
  Age: 5 Decade
  Sex: Male

DRUGS (2)
  1. GLUCOVANCE [Concomitant]
     Indication: DIABETES MELLITUS
  2. ONGLYZA [Suspect]
     Indication: DIABETES MELLITUS
     Dates: start: 20110101, end: 20110101

REACTIONS (3)
  - NAUSEA [None]
  - DERMATITIS ALLERGIC [None]
  - DIZZINESS [None]
